FAERS Safety Report 24653614 (Version 1)
Quarter: 2024Q4

REPORT INFORMATION
  Report Type: Spontaneous
  Country: GB (occurrence: GB)
  Receive Date: 20241122
  Receipt Date: 20241122
  Transmission Date: 20250115
  Serious: Yes (Other)
  Sender: TEVA
  Company Number: GB-MHRA-TPP20131627C949987YC1731599400565

PATIENT
  Age: 63 Year
  Sex: Male
  Weight: 84 kg

DRUGS (7)
  1. TAMSULOSIN [Suspect]
     Active Substance: TAMSULOSIN
     Indication: Ill-defined disorder
     Route: 065
     Dates: start: 20220331
  2. LANSOPRAZOLE [Concomitant]
     Active Substance: LANSOPRAZOLE
     Indication: Ill-defined disorder
     Dosage: MORNING
     Route: 065
     Dates: start: 20240319
  3. IBUPROFEN [Concomitant]
     Active Substance: IBUPROFEN
     Indication: Ill-defined disorder
     Dosage: TIME INTERVAL: 0.33333333 DAYS: APPLY 3 TIMES/DAY AS NEEDED
     Route: 065
     Dates: start: 20240610
  4. NEOMYCIN SULFATE [Concomitant]
     Active Substance: NEOMYCIN SULFATE
     Indication: Ill-defined disorder
     Dosage: APPLY 4 TIMES A DAY
     Route: 065
     Dates: start: 20241028, end: 20241107
  5. BECLOMETHASONE DIPROPIONATE [Concomitant]
     Active Substance: BECLOMETHASONE DIPROPIONATE
     Indication: Ill-defined disorder
     Dosage: ONE PUFF PER NOSTRIL TWICE DAILY
     Route: 065
     Dates: start: 20241028
  6. FEXOFENADINE [Concomitant]
     Active Substance: FEXOFENADINE HYDROCHLORIDE
     Indication: Ill-defined disorder
     Route: 065
     Dates: start: 20241028
  7. LOSARTAN [Concomitant]
     Active Substance: LOSARTAN
     Indication: Blood pressure measurement
     Dosage: TAKE ONE EVERY MORNING TO REDUCE BLOOD PRESSURE...
     Route: 065
     Dates: start: 20240319

REACTIONS (1)
  - Muscle spasms [Recovered/Resolved]

NARRATIVE: CASE EVENT DATE: 20220331
